FAERS Safety Report 7901669-7 (Version None)
Quarter: 2011Q4

REPORT INFORMATION
  Report Type: 
  Country: None (occurrence: None)
  Receive Date: 20111108
  Receipt Date: 20111103
  Transmission Date: 20120403
  Serious: Yes (Death)
  Sender: FDA-Public Use
  Company Number: JP-JNJFOC-20111102085

PATIENT
  Age: 67 Year
  Sex: Male

DRUGS (4)
  1. CYCLOPHOSPHAMIDE [Suspect]
     Indication: PRIMARY EFFUSION LYMPHOMA
     Route: 065
  2. VINCRISTINE [Suspect]
     Indication: PRIMARY EFFUSION LYMPHOMA
     Route: 065
  3. PREDNISOLONE [Suspect]
     Indication: PRIMARY EFFUSION LYMPHOMA
     Route: 065
  4. DOXORUBICIN HCL [Suspect]
     Indication: PRIMARY EFFUSION LYMPHOMA
     Route: 042

REACTIONS (1)
  - TUMOUR LYSIS SYNDROME [None]
